FAERS Safety Report 21330298 (Version 1)
Quarter: 2022Q3

REPORT INFORMATION
  Report Type: Spontaneous
  Country: JP (occurrence: None)
  Receive Date: 20220913
  Receipt Date: 20220913
  Transmission Date: 20221027
  Serious: Yes (Hospitalization)
  Sender: FDA-Public Use
  Company Number: 2022A311316

PATIENT
  Age: 75 Year
  Sex: Male

DRUGS (1)
  1. DURVALUMAB [Suspect]
     Active Substance: DURVALUMAB
     Indication: Non-small cell lung cancer stage IIIB
     Dosage: 10 MG/KG OF BODY WEIGHT IN EVERY 2 WEEKS AS CONSOLIDATION THERAPY
     Route: 042

REACTIONS (3)
  - Bronchopleural fistula [Recovering/Resolving]
  - Pneumonitis [Recovering/Resolving]
  - Pneumothorax [Recovering/Resolving]
